FAERS Safety Report 19677248 (Version 2)
Quarter: 2021Q3

REPORT INFORMATION
  Report Type: Other
  Country: AT (occurrence: AT)
  Receive Date: 20210810
  Receipt Date: 20210823
  Transmission Date: 20211014
  Serious: Yes (Other)
  Sender: FDA-Public Use
  Company Number: AT-CELLTRION INC.-2021AT010227

PATIENT

DRUGS (8)
  1. RITUXIMAB (UNKNOWN) [Suspect]
     Active Substance: RITUXIMAB
     Indication: DIFFUSE LARGE B-CELL LYMPHOMA
     Dosage: 375 MG/M2
     Route: 065
     Dates: start: 20200523
  2. CAELYX [Suspect]
     Active Substance: DOXORUBICIN HYDROCHLORIDE
     Indication: DIFFUSE LARGE B-CELL LYMPHOMA
     Dosage: 50 MG/M2, 80%
     Route: 065
     Dates: start: 20200520
  3. PREDNISOLONE. [Suspect]
     Active Substance: PREDNISOLONE
     Indication: DIFFUSE LARGE B-CELL LYMPHOMA
     Dosage: 40 MG/M2
     Route: 065
     Dates: start: 20200520
  4. BENDAMUSTINE [Suspect]
     Active Substance: BENDAMUSTINE
     Indication: DIFFUSE LARGE B-CELL LYMPHOMA
     Dosage: 70 MG/M2
     Route: 065
     Dates: start: 20201123
  5. POLIVY [Suspect]
     Active Substance: POLATUZUMAB VEDOTIN-PIIQ
     Indication: DIFFUSE LARGE B-CELL LYMPHOMA
     Dosage: 1.8 MG/KG
     Route: 065
     Dates: start: 20201123
  6. RITUXIMAB (UNKNOWN) [Suspect]
     Active Substance: RITUXIMAB
     Dosage: 375 MG/M2
     Route: 065
     Dates: start: 20201123
  7. CYCLOPHOSPHAMIDE. [Suspect]
     Active Substance: CYCLOPHOSPHAMIDE
     Indication: DIFFUSE LARGE B-CELL LYMPHOMA
     Dosage: 750 MG/M2, 80%
     Route: 065
     Dates: start: 20200520
  8. DOXORUBICIN [Suspect]
     Active Substance: DOXORUBICIN
     Indication: DIFFUSE LARGE B-CELL LYMPHOMA
     Dosage: 50 MG/M2 (80 %)
     Route: 065
     Dates: start: 20200520

REACTIONS (7)
  - Enterococcal bacteraemia [Unknown]
  - Fatigue [Unknown]
  - Product use in unapproved indication [Unknown]
  - Asthenia [Unknown]
  - Off label use [Unknown]
  - Asthenia [Unknown]
  - Urinary tract infection [Unknown]

NARRATIVE: CASE EVENT DATE: 202011
